FAERS Safety Report 13780275 (Version 1)
Quarter: 2017Q3

REPORT INFORMATION
  Report Type: Spontaneous
  Country: US (occurrence: US)
  Receive Date: 20170724
  Receipt Date: 20170724
  Transmission Date: 20171127
  Serious: No
  Sender: FDA-Public Use
  Company Number: US-LUPIN PHARMACEUTICALS INC.-2017-02245

PATIENT
  Sex: Female

DRUGS (1)
  1. GAVILYTE G [Suspect]
     Active Substance: POLYETHYLENE GLYCOL 3350\POTASSIUM CHLORIDE\SODIUM BICARBONATE\SODIUM CHLORIDE\SODIUM SULFATE ANHYDROUS
     Indication: ABNORMAL FAECES
     Dosage: 8 OZ IN EVERY 20 MINUTES
     Route: 065

REACTIONS (3)
  - Product use in unapproved indication [None]
  - Abdominal distension [Unknown]
  - Drug ineffective for unapproved indication [Unknown]
